FAERS Safety Report 6234582-4 (Version None)
Quarter: 2009Q2

REPORT INFORMATION
  Report Type: 
  Country: None (occurrence: None)
  Receive Date: 20090618
  Receipt Date: 20090506
  Transmission Date: 20091009
  Serious: Yes (Death)
  Sender: FDA-Public Use
  Company Number: NO-JNJFOC-20090605270

PATIENT
  Age: 41 Year
  Sex: Male

DRUGS (3)
  1. DURAGESIC-100 [Suspect]
     Indication: INTENTIONAL DRUG MISUSE
     Route: 042
  2. MORPHINE [Suspect]
     Indication: INTENTIONAL DRUG MISUSE
     Route: 042
  3. ETHANOL [Suspect]
     Indication: INTENTIONAL DRUG MISUSE
     Route: 042

REACTIONS (7)
  - APNOEA [None]
  - CYANOSIS [None]
  - DRUG TOXICITY [None]
  - HEPATITIS CHRONIC ACTIVE [None]
  - INTENTIONAL DRUG MISUSE [None]
  - LYMPHADENOPATHY [None]
  - PULMONARY OEDEMA [None]
